FAERS Safety Report 21958064 (Version 1)
Quarter: 2023Q1

REPORT INFORMATION
  Report Type: Spontaneous
  Country: GR (occurrence: GR)
  Receive Date: 20230206
  Receipt Date: 20230206
  Transmission Date: 20230417
  Serious: Yes (Hospitalization, Other)
  Sender: FDA-Public Use
  Company Number: None

PATIENT
  Age: 60 Year
  Sex: Male

DRUGS (5)
  1. AMOXIL [Suspect]
     Active Substance: AMOXICILLIN
     Indication: Infection
     Dosage: UNK
     Route: 065
  2. AMOXIL [Suspect]
     Active Substance: AMOXICILLIN
     Indication: Osteomyelitis
     Dosage: UNK
     Route: 048
  3. CLINDAMYCIN [Suspect]
     Active Substance: CLINDAMYCIN
     Indication: Infection
     Dosage: UNK
  4. CLINDAMYCIN [Suspect]
     Active Substance: CLINDAMYCIN
     Indication: Soft tissue infection
     Dosage: UNK
     Route: 048
  5. CLINDAMYCIN [Suspect]
     Active Substance: CLINDAMYCIN
     Indication: Osteomyelitis

REACTIONS (15)
  - Ascites [Recovered/Resolved]
  - Diarrhoea [Unknown]
  - Vomiting [Unknown]
  - Abdominal pain [Unknown]
  - Pyrexia [Unknown]
  - Cardiac murmur [Unknown]
  - Abdominal distension [Unknown]
  - Red blood cell sedimentation rate increased [Unknown]
  - Leukaemoid reaction [Unknown]
  - Hyponatraemia [Unknown]
  - Hypoalbuminaemia [Unknown]
  - Hypoxia [Unknown]
  - Clostridium test [Unknown]
  - Colitis [Recovered/Resolved]
  - Clostridium difficile infection [Recovered/Resolved]
